FAERS Safety Report 23696212 (Version 1)
Quarter: 2024Q2

REPORT INFORMATION
  Report Type: Spontaneous
  Country: CN (occurrence: CN)
  Receive Date: 20240402
  Receipt Date: 20240402
  Transmission Date: 20240716
  Serious: Yes (Hospitalization, Other)
  Sender: FDA-Public Use
  Company Number: CN-ALKEM LABORATORIES LIMITED-CN-ALKEM-2023-15420

PATIENT
  Age: 25 Year
  Sex: Male
  Weight: 86 kg

DRUGS (15)
  1. ZOLPIDEM [Suspect]
     Active Substance: ZOLPIDEM TARTRATE
     Indication: Depression
     Dosage: 10 MILLIGRAM, HS (EVERY NIGHT)
     Route: 065
  2. ZOLPIDEM [Suspect]
     Active Substance: ZOLPIDEM TARTRATE
     Dosage: 10 MILLIGRAM, HS (EVERY NIGHT) (RESUMED)
     Route: 065
  3. ZOLPIDEM [Suspect]
     Active Substance: ZOLPIDEM TARTRATE
     Dosage: 10 MILLIGRAM, HS (EVERY NIGHT) (FOR A BETTER HYPNOTIC EFFECT.)
     Route: 065
  4. ZOLPIDEM [Suspect]
     Active Substance: ZOLPIDEM TARTRATE
     Dosage: 80 MILLIGRAM, HS (EVERY NIGHT) (ONCE OR TWICE WEEKLY, WITH AN AVERAGE OF 30 MG EVERY NIGHT)
     Route: 065
  5. QUETIAPINE FUMARATE [Suspect]
     Active Substance: QUETIAPINE FUMARATE
     Indication: Depression
     Dosage: 100 MILLIGRAM, HS (EVERY NIGHT)
     Route: 065
  6. FLUOXETINE [Concomitant]
     Active Substance: FLUOXETINE HYDROCHLORIDE
     Indication: Depression
     Dosage: 20 MILLIGRAM, QD (PER DAY)
     Route: 065
  7. FLUOXETINE [Concomitant]
     Active Substance: FLUOXETINE HYDROCHLORIDE
     Dosage: 20 MILLIGRAM, QD (PER DAY) (RESUMED)
     Route: 065
  8. CLONAZEPAM [Concomitant]
     Active Substance: CLONAZEPAM
     Indication: Depression
     Dosage: 1 MILLIGRAM, HS (EVERY NIGHT)
     Route: 065
  9. CLONAZEPAM [Concomitant]
     Active Substance: CLONAZEPAM
     Dosage: 2 MILLIGRAM, HS (EVERY NIGHT) (INCREASED) (PER NIGHT)
     Route: 065
  10. CLONAZEPAM [Concomitant]
     Active Substance: CLONAZEPAM
     Dosage: 1 MILLIGRAM, HS (EVERY NIGHT) (REDUCED)
     Route: 065
  11. CLONAZEPAM [Concomitant]
     Active Substance: CLONAZEPAM
     Dosage: 0.25 MILLIGRAM, HS (EVERY NIGHT) (12 MONTHS AFTER DISCHARGE)
     Route: 065
  12. LITHIUM CARBONATE [Concomitant]
     Active Substance: LITHIUM CARBONATE
     Indication: Depression
     Dosage: 250 MILLIGRAM, BID (TWICE DAILY)
     Route: 065
  13. LITHIUM CARBONATE [Concomitant]
     Active Substance: LITHIUM CARBONATE
     Dosage: 250 MILLIGRAM, TID (INCREASED) (THREE TIMES A DAY)
     Route: 065
  14. LITHIUM CARBONATE [Concomitant]
     Active Substance: LITHIUM CARBONATE
     Dosage: 250 MILLIGRAM, TID (REDUCED) (THREE TIMES A DAY) (DAILY)
     Route: 065
  15. LITHIUM CARBONATE [Concomitant]
     Active Substance: LITHIUM CARBONATE
     Dosage: 250 MILLIGRAM, BID (TWICE DAILY) (12 MONTHS AFTER DISCHARGE)
     Route: 065

REACTIONS (31)
  - Loss of consciousness [Recovering/Resolving]
  - Hallucination [Recovering/Resolving]
  - Generalised tonic-clonic seizure [Recovering/Resolving]
  - Overdose [Unknown]
  - Drug abuse [Unknown]
  - Swelling of eyelid [Unknown]
  - Rhinorrhoea [Unknown]
  - Drooling [Unknown]
  - Urinary incontinence [Recovering/Resolving]
  - Staring [Unknown]
  - Dyskinesia [Recovering/Resolving]
  - Muscle twitching [Recovering/Resolving]
  - Tremor [Unknown]
  - Lacrimation increased [Unknown]
  - Muscle tightness [Unknown]
  - Hyperphagia [Unknown]
  - Hyperhidrosis [Recovering/Resolving]
  - Drug withdrawal syndrome [Unknown]
  - Irritability [Unknown]
  - Insomnia [Unknown]
  - Tremor [Recovering/Resolving]
  - Abnormal behaviour [Unknown]
  - Influenza like illness [Unknown]
  - Myalgia [Unknown]
  - Palpitations [Unknown]
  - Tension [Unknown]
  - Nausea [Unknown]
  - Vomiting [Unknown]
  - Appetite disorder [Recovering/Resolving]
  - Nervousness [Recovering/Resolving]
  - Paraesthesia [Unknown]
